FAERS Safety Report 7625614-7 (Version None)
Quarter: 2011Q3

REPORT INFORMATION
  Report Type: 
  Country: None (occurrence: None)
  Receive Date: 20110721
  Receipt Date: 20110718
  Transmission Date: 20111222
  Serious: Yes (Other)
  Sender: FDA-Public Use
  Company Number: US-AMGEN-USASP2010012881

PATIENT
  Age: 83 Year
  Sex: Female
  Weight: 112.93 kg

DRUGS (4)
  1. FOLATE [Concomitant]
     Route: 048
  2. NPLATE [Suspect]
     Indication: IDIOPATHIC THROMBOCYTOPENIC PURPURA
     Dosage: UNK UNK, QWK
     Route: 058
     Dates: start: 20100126, end: 20100801
  3. VITAMIN B-12 [Concomitant]
     Route: 058
  4. FERROUS SULFATE TAB [Concomitant]
     Route: 042

REACTIONS (4)
  - FATIGUE [None]
  - THERAPEUTIC EMBOLISATION [None]
  - THERAPEUTIC RESPONSE DECREASED [None]
  - DYSPNOEA EXERTIONAL [None]
